FAERS Safety Report 9752577 (Version 1)
Quarter: 2013Q4

REPORT INFORMATION
  Report Type: Spontaneous
  Country: US (occurrence: None)
  Receive Date: 20131211
  Receipt Date: 20131211
  Transmission Date: 20140711
  Serious: Yes (Hospitalization)
  Sender: FDA-Public Use
  Company Number: None

PATIENT
  Age: 74 Year
  Sex: Male
  Weight: 84.1 kg

DRUGS (2)
  1. ABIRATERONE ACETATE [Suspect]
  2. PREDNISONE [Suspect]

REACTIONS (1)
  - Pneumonia [None]
